FAERS Safety Report 5941390-8 (Version None)
Quarter: 2008Q4

REPORT INFORMATION
  Report Type: 
  Country: None (occurrence: None)
  Receive Date: 20081103
  Receipt Date: 20081023
  Transmission Date: 20090506
  Serious: Yes (Other)
  Sender: FDA-Public Use
  Company Number: PAR_02398_2008

PATIENT
  Age: 44 Year
  Sex: Female

DRUGS (3)
  1. CABERGOLINE [Suspect]
     Indication: HYPERPROLACTINAEMIA
     Dosage: (0.5 MG 2X/WEEK)
     Dates: start: 20060101, end: 20060101
  2. RISPERIDONE [Concomitant]
  3. FLUOXETINE [Concomitant]

REACTIONS (7)
  - ANXIETY [None]
  - CONDITION AGGRAVATED [None]
  - DELUSION OF REFERENCE [None]
  - DYSPHORIA [None]
  - HALLUCINATION, AUDITORY [None]
  - IATROGENIC INJURY [None]
  - PSYCHOTIC DISORDER [None]
